FAERS Safety Report 5417992-4 (Version None)
Quarter: 2007Q3

REPORT INFORMATION
  Report Type: 
  Country: None (occurrence: None)
  Receive Date: 20070815
  Receipt Date: 20070808
  Transmission Date: 20080115
  Serious: Yes (Other)
  Sender: FDA-Public Use
  Company Number: TPA2007A01670

PATIENT
  Sex: Female

DRUGS (1)
  1. ROZEREM [Suspect]
     Dosage: 8 MG, PER ORAL
     Route: 048
     Dates: start: 20070101, end: 20070101

REACTIONS (5)
  - ANAPHYLACTOID REACTION [None]
  - ASTHMA [None]
  - COUGH [None]
  - INSOMNIA [None]
  - RESPIRATORY DISORDER [None]
